FAERS Safety Report 5568945-7 (Version None)
Quarter: 2007Q4

REPORT INFORMATION
  Report Type: 
  Country: None (occurrence: None)
  Receive Date: 20071220
  Receipt Date: 20070329
  Transmission Date: 20080405
  Serious: No
  Sender: FDA-Public Use
  Company Number: A0645454A

PATIENT
  Sex: Male

DRUGS (1)
  1. AVODART [Suspect]
     Route: 048
     Dates: start: 20070301

REACTIONS (1)
  - POLLAKIURIA [None]
